FAERS Safety Report 9189248 (Version 1)
Quarter: 2013Q1

REPORT INFORMATION
  Report Type: Spontaneous
  Country: US (occurrence: None)
  Receive Date: 20130321
  Receipt Date: 20130321
  Transmission Date: 20140127
  Serious: Yes (Other)
  Sender: FDA-Public Use
  Company Number: None

PATIENT
  Age: 61 Year
  Sex: Female
  Weight: 70.31 kg

DRUGS (1)
  1. CYMBALTA 90 MG -60 MG AND 30MG LILLY [Suspect]
     Indication: DEPRESSION
     Dosage: 30 MG DAILY PO
     Route: 048
     Dates: start: 19950101, end: 20130201

REACTIONS (11)
  - Drug withdrawal syndrome [None]
  - Fatigue [None]
  - Nausea [None]
  - Muscle spasms [None]
  - Migraine [None]
  - Mood swings [None]
  - Anxiety [None]
  - Depression [None]
  - Visual impairment [None]
  - Decreased appetite [None]
  - Malaise [None]
